FAERS Safety Report 9859522 (Version 2)
Quarter: 2014Q1

REPORT INFORMATION
  Report Type: Spontaneous
  Country: JP (occurrence: JP)
  Receive Date: 20140131
  Receipt Date: 20140217
  Transmission Date: 20141002
  Serious: Yes (Other)
  Sender: FDA-Public Use
  Company Number: JP-TAKEDA-2014TJP001029

PATIENT
  Age: 88 Year
  Sex: Male

DRUGS (1)
  1. NESINA TABLETS 25MG [Suspect]
     Indication: TYPE 2 DIABETES MELLITUS
     Dosage: 25 MG, QD
     Route: 048
     Dates: start: 201301

REACTIONS (2)
  - Immune thrombocytopenic purpura [Unknown]
  - Helicobacter test positive [Unknown]
